FAERS Safety Report 7495368-6 (Version None)
Quarter: 2011Q2

REPORT INFORMATION
  Report Type: 
  Country: None (occurrence: None)
  Receive Date: 20110523
  Receipt Date: 20110512
  Transmission Date: 20111010
  Serious: No
  Sender: FDA-Public Use
  Company Number: US-BIOGENIDEC-2010BI037420

PATIENT
  Sex: Female

DRUGS (2)
  1. TYSABRI [Suspect]
     Indication: MULTIPLE SCLEROSIS
     Route: 042
     Dates: start: 20100922
  2. KLONOPIN [Concomitant]
     Indication: LOSS OF CONTROL OF LEGS

REACTIONS (8)
  - MEMORY IMPAIRMENT [None]
  - GLAUCOMA [None]
  - MUSCLE SPASMS [None]
  - TOOTH FRACTURE [None]
  - MULTIPLE SCLEROSIS RELAPSE [None]
  - SWELLING [None]
  - OPTIC NERVE INJURY [None]
  - TEMPOROMANDIBULAR JOINT SYNDROME [None]
